FAERS Safety Report 9973639 (Version 4)
Quarter: 2014Q3

REPORT INFORMATION
  Report Type: Spontaneous
  Country: JP (occurrence: JP)
  Receive Date: 20140306
  Receipt Date: 20140711
  Transmission Date: 20150326
  Serious: Yes (Other)
  Sender: FDA-Public Use
  Company Number: PHHY2014JP025099

PATIENT
  Sex: Female
  Weight: 73 kg

DRUGS (7)
  1. LEVOMEPROMAZINE [Suspect]
     Active Substance: LEVOMEPROMAZINE
     Indication: INSOMNIA
     Route: 048
  2. METHYLDOPA. [Suspect]
     Active Substance: METHYLDOPA
     Indication: GESTATIONAL HYPERTENSION
     Dosage: 750 MG, UNK
     Route: 048
     Dates: start: 20110125, end: 20110129
  3. MAGNESOL [Concomitant]
     Indication: ECLAMPSIA
     Dates: start: 20110129, end: 20110201
  4. ALDOMET [Concomitant]
     Active Substance: METHYLDOPA
     Indication: GESTATIONAL HYPERTENSION
     Dosage: 750 MG, UNK
     Route: 048
     Dates: start: 20010125, end: 20110129
  5. FLUNITRAZEPAM [Suspect]
     Active Substance: FLUNITRAZEPAM
     Indication: INSOMNIA
  6. PERDIPINE [Concomitant]
     Active Substance: NICARDIPINE HYDROCHLORIDE
     Indication: GESTATIONAL HYPERTENSION
     Dates: start: 20110129, end: 20110131
  7. APRESOLINE HYDROCHLORIDE [Suspect]
     Active Substance: HYDRALAZINE HYDROCHLORIDE
     Indication: GESTATIONAL HYPERTENSION
     Dosage: 120 MG, DAILY
     Route: 048
     Dates: start: 20110125, end: 20110129

REACTIONS (11)
  - Premature labour [Unknown]
  - Eclampsia [Unknown]
  - Visual impairment [Unknown]
  - Blood pressure increased [Recovered/Resolved]
  - Papilloedema [Unknown]
  - Maternal exposure during pregnancy [Unknown]
  - Posterior reversible encephalopathy syndrome [Unknown]
  - Convulsion [Unknown]
  - Oedema [Unknown]
  - Foetal growth restriction [Unknown]
  - Retinal haemorrhage [Unknown]
